FAERS Safety Report 12166781 (Version 4)
Quarter: 2018Q1

REPORT INFORMATION
  Report Type: Report from Study
  Country: US (occurrence: US)
  Receive Date: 20160310
  Receipt Date: 20180328
  Transmission Date: 20180508
  Serious: Yes (Hospitalization, Other)
  Sender: FDA-Public Use
  Company Number: US-UCBSA-2016008106

PATIENT
  Sex: Male

DRUGS (6)
  1. LACOSAMIDE. [Suspect]
     Active Substance: LACOSAMIDE
     Indication: SEIZURE
     Dosage: 2 TABLETS IN THE MORNIN (AM), 2 TABLETS AT AFTERNOON, 2 TABLETS AT NIGHT (STRENGTH: 100 MG)
     Route: 048
  2. LACOSAMIDE. [Suspect]
     Active Substance: LACOSAMIDE
     Dosage: 100 MG, 2X/DAY (BID)
     Dates: start: 201511
  3. LACOSAMIDE. [Suspect]
     Active Substance: LACOSAMIDE
     Dosage: 2 IN THE MORNING, 1 IN THE AFTERNOON, AND 2 AT BEDTIME, (STRENGTH: 100 MG)
     Route: 048
  4. KEPPRA [Suspect]
     Active Substance: LEVETIRACETAM
     Indication: SEIZURE
     Dosage: 750 MG, 4X/DAY (QID)
  5. VIMPAT [Suspect]
     Active Substance: LACOSAMIDE
     Indication: SEIZURE
     Dosage: UNK
     Route: 042
  6. HEPARIN [Concomitant]
     Active Substance: HEPARIN SODIUM
     Indication: THROMBOSIS
     Dosage: UNK
     Route: 048

REACTIONS (11)
  - Off label use [Unknown]
  - Drug dose omission [Unknown]
  - Clostridium difficile infection [Recovered/Resolved]
  - Thrombosis [Unknown]
  - Somnolence [Recovering/Resolving]
  - Bedridden [Unknown]
  - Inappropriate schedule of drug administration [Unknown]
  - Seizure [Not Recovered/Not Resolved]
  - Tremor [Recovered/Resolved]
  - Overdose [Unknown]
  - Malaise [Unknown]

NARRATIVE: CASE EVENT DATE: 2015
